FAERS Safety Report 9414828 (Version 1)
Quarter: 2013Q3

REPORT INFORMATION
  Report Type: Report from Study
  Country: US (occurrence: US)
  Receive Date: 20130723
  Receipt Date: 20130723
  Transmission Date: 20140515
  Serious: Yes (Other)
  Sender: FDA-Public Use
  Company Number: US-JNJFOC-20130710640

PATIENT
  Sex: Male
  Weight: 61.69 kg

DRUGS (1)
  1. REMICADE [Suspect]
     Indication: CROHN^S DISEASE
     Dosage: START DATE: ABOUT 1.5 YEARS AGO
     Route: 042
     Dates: start: 2012

REACTIONS (2)
  - Systemic lupus erythematosus [Recovered/Resolved]
  - Contusion [Not Recovered/Not Resolved]
